FAERS Safety Report 24867763 (Version 1)
Quarter: 2025Q1

REPORT INFORMATION
  Report Type: Spontaneous
  Country: US (occurrence: US)
  Receive Date: 20250121
  Receipt Date: 20250121
  Transmission Date: 20250409
  Serious: Yes (Other)
  Sender: TAKEDA
  Company Number: US-LUNDBECK-DKLU4009179

PATIENT
  Age: 1 Week
  Sex: Female

DRUGS (4)
  1. VORTIOXETINE [Suspect]
     Active Substance: VORTIOXETINE
     Indication: Product used for unknown indication
     Route: 064
  2. LEVOTHYROXINE [Suspect]
     Active Substance: LEVOTHYROXINE
     Indication: Hypothyroidism
     Route: 064
  3. LEVOTHYROXINE [Suspect]
     Active Substance: LEVOTHYROXINE
  4. DEXTROAMPHETAMINE SACCHARATE, AMPHETAMINE ASPARTATE, DEXTROAMPHETAMINE [Suspect]
     Active Substance: AMPHETAMINE ASPARTATE\AMPHETAMINE SULFATE\DEXTROAMPHETAMINE SACCHARATE\DEXTROAMPHETAMINE SULFATE
     Indication: Product used for unknown indication
     Route: 064

REACTIONS (4)
  - Bradycardia foetal [Unknown]
  - Deafness neurosensory [Recovered/Resolved]
  - Congenital hypothyroidism [Unknown]
  - Foetal exposure during pregnancy [Unknown]
